FAERS Safety Report 5655444-7 (Version None)
Quarter: 2008Q1

REPORT INFORMATION
  Report Type: 
  Country: None (occurrence: None)
  Receive Date: 20080307
  Receipt Date: 20080226
  Transmission Date: 20080703
  Serious: Yes (Hospitalization)
  Sender: FDA-Public Use
  Company Number: US-ELI_LILLY_AND_COMPANY-US200802000298

PATIENT
  Sex: Female

DRUGS (12)
  1. HUMULIN R [Suspect]
     Indication: DIABETES MELLITUS
     Dates: start: 20040101
  2. HUMULIN N [Suspect]
     Indication: DIABETES MELLITUS
     Dates: start: 20040101
  3. VICODIN [Concomitant]
  4. LASIX [Concomitant]
     Indication: CARDIAC FAILURE CONGESTIVE
     Dosage: 40 UNK, UNK
  5. MILK OF MAGNESIA [Concomitant]
     Dosage: 20 UNK, UNK
  6. ISOSORBIDE DINITRATE [Concomitant]
     Indication: CORONARY ARTERY DISEASE
     Dosage: 30 UNK, UNK
  7. ZYRTEC [Concomitant]
     Indication: HYPERSENSITIVITY
     Dosage: 10 UNK, UNK
  8. PROTONIX [Concomitant]
     Indication: GASTROOESOPHAGEAL REFLUX DISEASE
     Dosage: 40 UNK, UNK
  9. CITALOPRAM HYDROBROMIDE [Concomitant]
     Indication: DEPRESSION
     Dosage: 40 UNK, UNK
  10. AMARYL [Concomitant]
     Indication: DIABETES MELLITUS
     Dosage: 4 UNK, UNK
  11. PLAVIX [Concomitant]
     Indication: CORONARY ARTERY DISEASE
     Dosage: 75 UNK, UNK
  12. ULTRAM [Concomitant]
     Indication: ARTHRITIS
     Dosage: 200 UNK, UNK
     Dates: end: 20080102

REACTIONS (3)
  - CONSTIPATION [None]
  - INFLUENZA [None]
  - STOMACH DISCOMFORT [None]
